FAERS Safety Report 4506497-0 (Version None)
Quarter: 2004Q4

REPORT INFORMATION
  Report Type: 
  Country: None (occurrence: None)
  Receive Date: 20041122
  Receipt Date: 20041110
  Transmission Date: 20050328
  Serious: Yes (Other)
  Sender: FDA-Public Use
  Company Number: GR-ABBOTT-04P-066-0280211-00

PATIENT
  Age: 62 Year
  Sex: Female

DRUGS (1)
  1. KLARICID [Suspect]
     Indication: CHRONIC OBSTRUCTIVE AIRWAYS DISEASE EXACERBATED
     Route: 048
     Dates: start: 20041102, end: 20041106

REACTIONS (3)
  - ABDOMINAL PAIN [None]
  - BLOOD LACTATE DEHYDROGENASE INCREASED [None]
  - FLATULENCE [None]
